FAERS Safety Report 21403571 (Version 2)
Quarter: 2024Q3

REPORT INFORMATION
  Report Type: Report from Study
  Country: GB (occurrence: GB)
  Receive Date: 20221003
  Receipt Date: 20240824
  Transmission Date: 20241017
  Serious: Yes (Other)
  Sender: UCB
  Company Number: GB-UCBSA-2022057739

PATIENT
  Sex: Female

DRUGS (1)
  1. CERTOLIZUMAB PEGOL [Suspect]
     Active Substance: CERTOLIZUMAB PEGOL
     Indication: Rheumatoid arthritis
     Dosage: 200 MILLIGRAM, EV 2 WEEKS(QOW)
     Route: 058
     Dates: start: 20130711

REACTIONS (3)
  - Haemorrhage [Unknown]
  - Limb injury [Unknown]
  - Nail operation [Unknown]

NARRATIVE: CASE EVENT DATE: 20220101
